FAERS Safety Report 8130854-7 (Version None)
Quarter: 2012Q1

REPORT INFORMATION
  Report Type: 
  Country: None (occurrence: None)
  Receive Date: 20120213
  Receipt Date: 20120211
  Transmission Date: 20120608
  Serious: No
  Sender: FDA-Public Use
  Company Number: US-PFIZER INC-2012037350

PATIENT
  Sex: Female
  Weight: 63.5 kg

DRUGS (2)
  1. CHANTIX [Suspect]
     Indication: SMOKING CESSATION THERAPY
     Dosage: 0.5 MG AT AN UNKNOWN FREQUENCY
     Route: 048
     Dates: start: 20091101, end: 20091101
  2. CHANTIX [Suspect]
     Dosage: 1 MG AT AN UNKNOWN FREQUENCY
     Route: 048
     Dates: start: 20091101

REACTIONS (1)
  - NAUSEA [None]
